FAERS Safety Report 17274876 (Version 1)
Quarter: 2020Q1

REPORT INFORMATION
  Report Type: Spontaneous
  Country: US (occurrence: US)
  Receive Date: 20200116
  Receipt Date: 20200116
  Transmission Date: 20200409
  Serious: Yes (Death, Other)
  Sender: FDA-Public Use
  Company Number: US-AMGEN-USASP2020005618

PATIENT

DRUGS (8)
  1. DARBEPOETIN ALFA [Suspect]
     Active Substance: DARBEPOETIN ALFA
     Indication: MYELODYSPLASTIC SYNDROME
     Dosage: UNK
     Route: 065
  2. DARBEPOETIN ALFA [Suspect]
     Active Substance: DARBEPOETIN ALFA
     Indication: MYELOPROLIFERATIVE NEOPLASM
  3. EPOETIN ALFA [Suspect]
     Active Substance: ERYTHROPOIETIN
     Indication: MYELOPROLIFERATIVE NEOPLASM
  4. EPOETIN ALFA [Suspect]
     Active Substance: ERYTHROPOIETIN
     Indication: THROMBOCYTOSIS
  5. DARBEPOETIN ALFA [Suspect]
     Active Substance: DARBEPOETIN ALFA
     Indication: SIDEROBLASTIC ANAEMIA
  6. EPOETIN ALFA [Suspect]
     Active Substance: ERYTHROPOIETIN
     Indication: SIDEROBLASTIC ANAEMIA
  7. EPOETIN ALFA [Suspect]
     Active Substance: ERYTHROPOIETIN
     Indication: MYELODYSPLASTIC SYNDROME
     Dosage: UNK
     Route: 065
  8. DARBEPOETIN ALFA [Suspect]
     Active Substance: DARBEPOETIN ALFA
     Indication: THROMBOCYTOSIS

REACTIONS (9)
  - Splenic infarction [Unknown]
  - Drug ineffective for unapproved indication [Unknown]
  - Embolism venous [Unknown]
  - Hypertension [Unknown]
  - Death [Fatal]
  - Haemoglobin increased [Unknown]
  - Adverse event [Unknown]
  - Leukaemia [Fatal]
  - Ischaemic stroke [Unknown]
